FAERS Safety Report 6043990-6 (Version None)
Quarter: 2009Q1

REPORT INFORMATION
  Report Type: 
  Country: None (occurrence: None)
  Receive Date: 20090120
  Receipt Date: 20090108
  Transmission Date: 20090719
  Serious: Yes (Hospitalization, Other)
  Sender: FDA-Public Use
  Company Number: US-PFIZER INC-2008096542

PATIENT
  Sex: Male
  Weight: 116 kg

DRUGS (7)
  1. SUTENT [Suspect]
     Indication: RENAL CANCER
     Dosage: EVERY DAY
     Route: 048
     Dates: start: 20070101
  2. CLONIDINE [Concomitant]
     Route: 048
  3. CLONIDINE [Concomitant]
  4. COZAAR [Concomitant]
  5. METOPROLOL TARTRATE [Concomitant]
  6. ZOMETA [Concomitant]
  7. METOLAZONE [Concomitant]

REACTIONS (11)
  - ABDOMINAL DISCOMFORT [None]
  - BASAL CELL CARCINOMA [None]
  - CONSTIPATION [None]
  - DIARRHOEA [None]
  - DYSPEPSIA [None]
  - FATIGUE [None]
  - GOUT [None]
  - HYPERTENSIVE CRISIS [None]
  - MYALGIA [None]
  - PALMAR-PLANTAR ERYTHRODYSAESTHESIA SYNDROME [None]
  - VOMITING [None]
